APPROVED DRUG PRODUCT: CITALOPRAM HYDROBROMIDE
Active Ingredient: CITALOPRAM HYDROBROMIDE
Strength: EQ 20MG BASE
Dosage Form/Route: TABLET;ORAL
Application: A077654 | Product #002
Applicant: GLENMARK PHARMACEUTICALS LTD
Approved: Feb 27, 2009 | RLD: No | RS: No | Type: DISCN